FAERS Safety Report 21669339 (Version 1)
Quarter: 2022Q4

REPORT INFORMATION
  Report Type: Spontaneous
  Country: BR (occurrence: BR)
  Receive Date: 20221201
  Receipt Date: 20221201
  Transmission Date: 20230113
  Serious: Yes (Other)
  Sender: FDA-Public Use
  Company Number: BR-ABBVIE-4220550

PATIENT
  Sex: Female

DRUGS (1)
  1. VENCLEXTA [Suspect]
     Active Substance: VENETOCLAX
     Indication: Chronic lymphocytic leukaemia
     Route: 048

REACTIONS (3)
  - Toxicity to various agents [Unknown]
  - Febrile neutropenia [Unknown]
  - Neutropenia [Unknown]
